FAERS Safety Report 8209050-0 (Version None)
Quarter: 2012Q1

REPORT INFORMATION
  Report Type: 
  Country: None (occurrence: None)
  Receive Date: 20120314
  Receipt Date: 20120229
  Transmission Date: 20120608
  Serious: Yes (Hospitalization)
  Sender: FDA-Public Use
  Company Number: DE-CELGENEUS-062-21660-12030026

PATIENT
  Age: 73 Year
  Sex: Female
  Weight: 92 kg

DRUGS (6)
  1. KORODIN [Concomitant]
     Dosage: 15
     Route: 065
  2. CAPECITABINE [Suspect]
     Dosage: 4000 MILLIGRAM
     Route: 048
     Dates: start: 20110823, end: 20110824
  3. ABRAXANE [Suspect]
     Dosage: 200 MILLIGRAM
     Route: 041
     Dates: start: 20110823, end: 20110823
  4. BISOPROLOL FUMARATE [Concomitant]
     Dosage: 5 MILLIGRAM
     Route: 065
  5. VENOSTASIN [Concomitant]
     Dosage: 50 MILLIGRAM
     Route: 065
  6. RHEUMA-PASC [Concomitant]
     Dosage: 100 MILLIGRAM
     Route: 065

REACTIONS (1)
  - DIZZINESS [None]
